FAERS Safety Report 21255225 (Version 1)
Quarter: 2022Q3

REPORT INFORMATION
  Report Type: Spontaneous
  Country: US (occurrence: None)
  Receive Date: 20220824
  Receipt Date: 20220824
  Transmission Date: 20221026
  Serious: Yes (Hospitalization)
  Sender: FDA-Public Use
  Company Number: None

PATIENT
  Age: 65 Year
  Sex: Male

DRUGS (1)
  1. ABIRATERONE [Suspect]
     Active Substance: ABIRATERONE
     Dosage: FREQUENCY : TWICE A DAY;?
     Route: 048

REACTIONS (9)
  - Cancer pain [None]
  - Muscle spasms [None]
  - Headache [None]
  - Arthralgia [None]
  - Myalgia [None]
  - Haemoglobin decreased [None]
  - Transfusion [None]
  - Pain in extremity [None]
  - Pain in extremity [None]

NARRATIVE: CASE EVENT DATE: 20220809
